FAERS Safety Report 20829657 (Version 10)
Quarter: 2024Q1

REPORT INFORMATION
  Report Type: Spontaneous
  Country: US (occurrence: US)
  Receive Date: 20220513
  Receipt Date: 20240220
  Transmission Date: 20240409
  Serious: No
  Sender: FDA-Public Use
  Company Number: US-PFIZER INC-202200402157

PATIENT
  Age: 64 Year
  Sex: Female

DRUGS (2)
  1. BOSULIF [Suspect]
     Active Substance: BOSUTINIB MONOHYDRATE
     Indication: Leukaemia
     Dosage: 100 MG
  2. BOSULIF [Suspect]
     Active Substance: BOSUTINIB MONOHYDRATE
     Indication: Chronic myeloid leukaemia
     Dosage: 300 MG, DAILY (TAKE THREE 100MG TABLETS BY MOUTH DAILY WITH FOOD)
     Route: 048

REACTIONS (4)
  - Nervousness [Not Recovered/Not Resolved]
  - Migraine [Not Recovered/Not Resolved]
  - Hypoacusis [Unknown]
  - Asthma [Unknown]
